FAERS Safety Report 5579897-8 (Version None)
Quarter: 2008Q1

REPORT INFORMATION
  Report Type: 
  Country: None (occurrence: None)
  Receive Date: 20080103
  Receipt Date: 20071218
  Transmission Date: 20080703
  Serious: Yes (Hospitalization)
  Sender: FDA-Public Use
  Company Number: US-BAYER-US-2007-043618

PATIENT
  Age: 13 Year
  Sex: Female
  Weight: 68 kg

DRUGS (2)
  1. YAZ [Suspect]
     Indication: CONTRACEPTION
     Route: 048
     Dates: start: 20070723, end: 20071101
  2. AMNESTEEM [Concomitant]
     Indication: ACNE
     Route: 048
     Dates: start: 20070921, end: 20071101

REACTIONS (1)
  - DEEP VEIN THROMBOSIS [None]
